FAERS Safety Report 5690102-4 (Version None)
Quarter: 2008Q1

REPORT INFORMATION
  Report Type: 
  Country: None (occurrence: None)
  Receive Date: 20080331
  Receipt Date: 20080331
  Transmission Date: 20080703
  Serious: Yes (Other)
  Sender: FDA-Public Use
  Company Number: None

PATIENT
  Age: 18 Year
  Sex: Female
  Weight: 68.0396 kg

DRUGS (2)
  1. SINGULAIR [Suspect]
     Indication: ASTHMA
     Dosage: 10MG ONCE DAILY PO
     Route: 048
  2. SINGULAIR [Suspect]
     Indication: RHINITIS
     Dosage: 10MG ONCE DAILY PO
     Route: 048

REACTIONS (3)
  - DISTURBANCE IN ATTENTION [None]
  - DYSGRAPHIA [None]
  - SOMNOLENCE [None]
